FAERS Safety Report 9633781 (Version 1)
Quarter: 2013Q4

REPORT INFORMATION
  Report Type: Spontaneous
  Country: US (occurrence: None)
  Receive Date: 20131017
  Receipt Date: 20131017
  Transmission Date: 20140711
  Serious: Yes (Death)
  Sender: FDA-Public Use
  Company Number: 2013AP008631

PATIENT
  Age: 40 Year
  Sex: Female

DRUGS (6)
  1. BUPROPION HYDROCHLORIDE TABLETS [Suspect]
     Route: 048
  2. ETHANOL [Suspect]
     Route: 048
  3. AMPHETAMINE SALTS [Suspect]
     Route: 048
  4. BENZODIAZEPINE DERIVATIVES [Suspect]
     Route: 048
  5. ACAMPROSATE [Concomitant]
  6. BUPROPION [Concomitant]

REACTIONS (13)
  - Overdose [None]
  - Unresponsive to stimuli [None]
  - Grand mal convulsion [None]
  - Toxicity to various agents [None]
  - Cardiac arrest [None]
  - Mental status changes [None]
  - Mental impairment [None]
  - Sinus tachycardia [None]
  - Mucosal dryness [None]
  - Hepatic steatosis [None]
  - Coma [None]
  - Metabolic acidosis [None]
  - Accidental death [None]
